FAERS Safety Report 18646580 (Version 1)
Quarter: 2020Q4

REPORT INFORMATION
  Report Type: Spontaneous
  Country: FR (occurrence: FR)
  Receive Date: 20201222
  Receipt Date: 20201222
  Transmission Date: 20210114
  Serious: Yes (Hospitalization, Other)
  Sender: FDA-Public Use
  Company Number: FR-AUROBINDO-AUR-APL-2020-062128

PATIENT
  Age: 54 Year
  Sex: Male
  Weight: 98 kg

DRUGS (4)
  1. VANCOMYCINE MYLAN [Suspect]
     Active Substance: VANCOMYCIN
     Indication: OSTEOMYELITIS
     Dosage: 1.5 MILLIGRAM, TWO TIMES A DAY
     Route: 041
     Dates: start: 20201025, end: 20201030
  2. BACTRIM [Suspect]
     Active Substance: SULFAMETHOXAZOLE\TRIMETHOPRIM
     Indication: OSTEOMYELITIS
     Dosage: 5 DOSAGE FORM, ONCE A DAY
     Route: 048
     Dates: start: 20201030, end: 20201126
  3. CIPROFLOXACIN HYDROCHLORIDE ARROW FILM-COATED TABLET 500MG [Suspect]
     Active Substance: CIPROFLOXACIN HYDROCHLORIDE
     Indication: OSTEOMYELITIS
     Dosage: 3 DOSAGE FORM, ONCE A DAY
     Route: 048
     Dates: start: 20201030, end: 20201126
  4. PIPERACILLINE PANPHARMA [Suspect]
     Active Substance: PIPERACILLIN SODIUM
     Indication: OSTEOMYELITIS
     Dosage: 4 GRAM, 3 TIMES A DAY
     Route: 065
     Dates: start: 20201025, end: 20201030

REACTIONS (5)
  - Cheilitis [Recovered/Resolved]
  - Eosinophilia [Not Recovered/Not Resolved]
  - Hepatocellular injury [Recovering/Resolving]
  - Cholestasis [Recovering/Resolving]
  - Rash [Recovered/Resolved]

NARRATIVE: CASE EVENT DATE: 20201115
